FAERS Safety Report 5494340-5 (Version None)
Quarter: 2007Q4

REPORT INFORMATION
  Report Type: 
  Country: None (occurrence: None)
  Receive Date: 20071024
  Receipt Date: 20071018
  Transmission Date: 20080405
  Serious: Yes (Other)
  Sender: FDA-Public Use
  Company Number: GB-NOVOPROD-267540

PATIENT
  Sex: Male
  Weight: 83 kg

DRUGS (5)
  1. HUMALOG PEN [Suspect]
     Dosage: 8 IU, QD
     Route: 058
     Dates: start: 20070903
  2. HUMALOG PEN [Suspect]
     Dosage: 6 IU, UNK
     Route: 058
  3. INSULATARD [Concomitant]
     Dosage: 38 IU, QD
     Route: 058
  4. CANDESARTAN CILEXETIL [Concomitant]
     Dosage: 8 MG, QD
     Route: 048
  5. ATENOLOL [Concomitant]
     Dosage: 50 MG, QD
     Route: 048

REACTIONS (2)
  - HYPOGLYCAEMIA [None]
  - ROAD TRAFFIC ACCIDENT [None]
